FAERS Safety Report 15577705 (Version 1)
Quarter: 2018Q4

REPORT INFORMATION
  Report Type: Spontaneous
  Country: JP (occurrence: JP)
  Receive Date: 20181102
  Receipt Date: 20181102
  Transmission Date: 20190205
  Serious: Yes (Other)
  Sender: FDA-Public Use
  Company Number: JP-TEVA-2018-JP-972126

PATIENT
  Age: 37 Year
  Sex: Female

DRUGS (11)
  1. CYCLOSPORIN [Suspect]
     Active Substance: CYCLOSPORINE
     Indication: LUPUS NEPHRITIS
  2. PREDNISOLONE. [Suspect]
     Active Substance: PREDNISOLONE
     Indication: LUPUS NEPHRITIS
     Dosage: 7 MILLIGRAM DAILY;
     Route: 048
  3. METHYLPREDNISOLONE. [Suspect]
     Active Substance: METHYLPREDNISOLONE
     Indication: SYSTEMIC LUPUS ERYTHEMATOSUS
     Dosage: HIGH DOSE
     Route: 042
  4. CYCLOPHOSPHAMIDE. [Suspect]
     Active Substance: CYCLOPHOSPHAMIDE
     Indication: SYSTEMIC LUPUS ERYTHEMATOSUS
     Dosage: HIGH DOSE
     Route: 042
  5. MYCOPHENOLATE MOFETIL. [Suspect]
     Active Substance: MYCOPHENOLATE MOFETIL
     Indication: LUPUS NEPHRITIS
  6. MYCOPHENOLATE MOFETIL. [Suspect]
     Active Substance: MYCOPHENOLATE MOFETIL
     Indication: SYSTEMIC LUPUS ERYTHEMATOSUS
     Dosage: 1000-1250 MG/DAY
     Route: 065
  7. 6-MERCAPTOPURINE [Suspect]
     Active Substance: MERCAPTOPURINE
     Indication: SYSTEMIC LUPUS ERYTHEMATOSUS
     Route: 048
  8. CYCLOSPORIN [Suspect]
     Active Substance: CYCLOSPORINE
     Indication: SYSTEMIC LUPUS ERYTHEMATOSUS
     Route: 065
  9. PREDNISOLONE. [Suspect]
     Active Substance: PREDNISOLONE
     Indication: SYSTEMIC LUPUS ERYTHEMATOSUS
     Dosage: 8-10 MG/DAY; INITIAL DOSE NOT STATED
     Route: 048
  10. AZATHIOPRINE. [Suspect]
     Active Substance: AZATHIOPRINE
     Indication: SYSTEMIC LUPUS ERYTHEMATOSUS
     Route: 048
  11. CYCLOPHOSPHAMIDE. [Suspect]
     Active Substance: CYCLOPHOSPHAMIDE
     Indication: LUPUS NEPHRITIS

REACTIONS (2)
  - Progressive multifocal leukoencephalopathy [Recovering/Resolving]
  - JC virus infection [Recovering/Resolving]
